FAERS Safety Report 11661288 (Version 2)
Quarter: 2015Q4

REPORT INFORMATION
  Report Type: Report from Study
  Country: AU (occurrence: AU)
  Receive Date: 20151026
  Receipt Date: 20151229
  Transmission Date: 20160304
  Serious: Yes (Other)
  Sender: FDA-Public Use
  Company Number: AU-ABBVIE-15P-008-1486701-00

PATIENT
  Sex: Male

DRUGS (1)
  1. LUCRIN [Suspect]
     Active Substance: LEUPROLIDE ACETATE
     Indication: PROSTATE CANCER
     Route: 065
     Dates: start: 2009

REACTIONS (6)
  - Neoplasm malignant [Unknown]
  - Injection site pain [Unknown]
  - Pain in extremity [Unknown]
  - Discomfort [Unknown]
  - Hemiparesis [Unknown]
  - Pain [Unknown]
